FAERS Safety Report 9366432 (Version 1)
Quarter: 2013Q2

REPORT INFORMATION
  Report Type: Spontaneous
  Country: GB (occurrence: GB)
  Receive Date: 20130625
  Receipt Date: 20130625
  Transmission Date: 20140414
  Serious: Yes (Disabling, Other)
  Sender: FDA-Public Use
  Company Number: GB-MYLANLABS-2013S1012746

PATIENT
  Age: 34 Year
  Sex: Female
  Weight: 73 kg

DRUGS (13)
  1. SERTRALINE [Suspect]
     Indication: ANXIETY
     Route: 048
  2. SERTRALINE [Suspect]
     Indication: DIZZINESS
     Route: 048
  3. SERTRALINE [Suspect]
     Indication: DYSPHEMIA
     Route: 048
  4. SERTRALINE [Suspect]
     Indication: GAIT DISTURBANCE
     Route: 048
  5. SERTRALINE [Suspect]
     Indication: ANXIETY
     Route: 048
  6. SERTRALINE [Suspect]
     Indication: DIZZINESS
     Route: 048
  7. SERTRALINE [Suspect]
     Indication: DYSPHEMIA
     Route: 048
  8. SERTRALINE [Suspect]
     Indication: GAIT DISTURBANCE
     Route: 048
  9. SERTRALINE [Suspect]
     Indication: ANXIETY
     Route: 048
  10. SERTRALINE [Suspect]
     Indication: DIZZINESS
     Route: 048
  11. SERTRALINE [Suspect]
     Indication: DYSPHEMIA
     Route: 048
  12. SERTRALINE [Suspect]
     Indication: GAIT DISTURBANCE
     Route: 048
  13. TRIMETHOPRIM [Concomitant]
     Indication: PRODUCT USED FOR UNKNOWN INDICATION

REACTIONS (25)
  - Anxiety [Recovered/Resolved with Sequelae]
  - Bladder discomfort [Recovered/Resolved with Sequelae]
  - Condition aggravated [Unknown]
  - Somnolence [Recovering/Resolving]
  - Decreased eye contact [Recovering/Resolving]
  - Insomnia [Recovered/Resolved with Sequelae]
  - Dizziness [Recovered/Resolved with Sequelae]
  - Fear [Recovered/Resolved]
  - Anorgasmia [Recovered/Resolved with Sequelae]
  - Speech disorder [Not Recovered/Not Resolved]
  - Drug ineffective [Unknown]
  - Diarrhoea [Recovered/Resolved]
  - Nausea [Recovered/Resolved with Sequelae]
  - Panic attack [Recovered/Resolved]
  - Disturbance in attention [Recovering/Resolving]
  - Tremor [Recovered/Resolved]
  - Dysphemia [Recovered/Resolved]
  - Staring [Recovering/Resolving]
  - Logorrhoea [Not Recovered/Not Resolved]
  - Self-injurious ideation [Recovered/Resolved with Sequelae]
  - Dysuria [Recovered/Resolved with Sequelae]
  - Pollakiuria [Recovered/Resolved with Sequelae]
  - Gait disturbance [Unknown]
  - Yawning [Recovered/Resolved]
  - Off label use [Unknown]
